FAERS Safety Report 8316889-X (Version None)
Quarter: 2012Q2

REPORT INFORMATION
  Report Type: 
  Country: None (occurrence: None)
  Receive Date: 20120427
  Receipt Date: 20120419
  Transmission Date: 20120825
  Serious: Yes (Hospitalization)
  Sender: FDA-Public Use
  Company Number: US-BAYER-2011-087517

PATIENT
  Age: 19 Year
  Sex: Female
  Weight: 52.154 kg

DRUGS (1)
  1. YAZ [Suspect]
     Indication: ACNE
     Dosage: UNK
     Route: 048
     Dates: start: 20081101, end: 20100421

REACTIONS (11)
  - EMOTIONAL DISTRESS [None]
  - COR PULMONALE ACUTE [None]
  - GENERAL PHYSICAL HEALTH DETERIORATION [None]
  - PAIN [None]
  - PULMONARY EMBOLISM [None]
  - DEEP VEIN THROMBOSIS [None]
  - FEAR [None]
  - PULMONARY INFARCTION [None]
  - ABDOMINAL PAIN LOWER [None]
  - ANXIETY [None]
  - INJURY [None]
